FAERS Safety Report 4270676-0 (Version None)
Quarter: 2004Q1

REPORT INFORMATION
  Report Type: 
  Country: None (occurrence: None)
  Receive Date: 20040114
  Receipt Date: 20040107
  Transmission Date: 20041129
  Serious: Yes (Hospitalization)
  Sender: FDA-Public Use
  Company Number: WAES 0401USA00528

PATIENT
  Age: 53 Year
  Sex: Male

DRUGS (3)
  1. ASPIRIN [Suspect]
     Dates: start: 20031224, end: 20031226
  2. PEPCID [Suspect]
     Route: 048
     Dates: start: 20031224, end: 20031226
  3. DIOVAN [Suspect]
     Dates: start: 20031224, end: 20031226

REACTIONS (3)
  - ANURIA [None]
  - BLOOD CREATININE INCREASED [None]
  - HAEMODIALYSIS [None]
